FAERS Safety Report 14425337 (Version 1)
Quarter: 2018Q1

REPORT INFORMATION
  Report Type: Spontaneous
  Country: GB (occurrence: GB)
  Receive Date: 20180123
  Receipt Date: 20180123
  Transmission Date: 20180509
  Serious: Yes (Other)
  Sender: FDA-Public Use
  Company Number: GB-TEVA-2018-GB-848849

PATIENT
  Age: 94 Year
  Sex: Male

DRUGS (3)
  1. BRINZOLAMIDE [Concomitant]
     Active Substance: BRINZOLAMIDE
     Indication: GLAUCOMA
  2. TRIMETHOPRIM. [Suspect]
     Active Substance: TRIMETHOPRIM
     Route: 065
  3. GANFORT [Concomitant]
     Active Substance: BIMATOPROST\TIMOLOL
     Indication: GLAUCOMA

REACTIONS (1)
  - Tinnitus [Recovered/Resolved]
